FAERS Safety Report 5256966-3 (Version None)
Quarter: 2007Q1

REPORT INFORMATION
  Report Type: 
  Country: None (occurrence: None)
  Receive Date: 20070305
  Receipt Date: 20070305
  Transmission Date: 20070707
  Serious: No
  Sender: FDA-Public Use
  Company Number: None

PATIENT
  Age: 78 Year
  Sex: Female
  Weight: 62.5964 kg

DRUGS (2)
  1. NIFEDIPINE [Suspect]
     Indication: BLOOD PRESSURE
     Dosage: 30MG TABS 1 PER DAY PO
     Route: 048
     Dates: start: 20070207, end: 20070213
  2. NIFEDIPINE [Suspect]
     Indication: RAYNAUD'S PHENOMENON
     Dosage: 30MG TABS 1 PER DAY PO
     Route: 048
     Dates: start: 20070207, end: 20070213

REACTIONS (8)
  - CONSTIPATION [None]
  - ERYTHEMA [None]
  - EYE SWELLING [None]
  - FLUSHING [None]
  - JOINT SWELLING [None]
  - OEDEMA PERIPHERAL [None]
  - RASH [None]
  - SWELLING FACE [None]
